FAERS Safety Report 11667176 (Version 5)
Quarter: 2016Q3

REPORT INFORMATION
  Report Type: Report from Study
  Country: JP (occurrence: JP)
  Receive Date: 20151027
  Receipt Date: 20160812
  Transmission Date: 20161109
  Serious: Yes (Death, Other)
  Sender: FDA-Public Use
  Company Number: JP-GILEAD-2015-0177680

PATIENT
  Age: 73 Year
  Sex: Female
  Weight: 37 kg

DRUGS (15)
  1. AROMASIN [Concomitant]
     Active Substance: EXEMESTANE
     Indication: CANCER HORMONAL THERAPY
     Dosage: UNK
  2. AROMASIN [Concomitant]
     Active Substance: EXEMESTANE
     Indication: PROPHYLAXIS
     Dosage: UNK
  3. DIART [Concomitant]
     Active Substance: AZOSEMIDE
     Dosage: UNK
     Dates: end: 20150712
  4. TAKEPRON [Concomitant]
     Active Substance: LANSOPRAZOLE
     Dosage: UNK
     Dates: end: 20150712
  5. AMBRISENTAN [Suspect]
     Active Substance: AMBRISENTAN
     Indication: PULMONARY HYPERTENSION
     Dosage: 5 MG, BID
     Route: 048
     Dates: start: 20150619, end: 20150622
  6. AMBRISENTAN [Suspect]
     Active Substance: AMBRISENTAN
     Dosage: 5 MG, QD
     Route: 048
     Dates: start: 20150615, end: 20150618
  7. TYKERB [Concomitant]
     Active Substance: LAPATINIB DITOSYLATE
     Indication: PROPHYLAXIS
     Dosage: UNK
  8. TYKERB [Concomitant]
     Active Substance: LAPATINIB DITOSYLATE
     Dosage: UNK
  9. AMLODIPINE [Concomitant]
     Active Substance: AMLODIPINE BESYLATE
     Dosage: UNK
     Dates: end: 20150712
  10. TYKERB [Concomitant]
     Active Substance: LAPATINIB DITOSYLATE
     Indication: BREAST CANCER
     Dosage: UNK
  11. TYKERB [Concomitant]
     Active Substance: LAPATINIB DITOSYLATE
     Dosage: UNK
  12. EDIROL [Concomitant]
     Active Substance: ELDECALCITOL
     Dosage: UNK
  13. SAMSCA [Concomitant]
     Active Substance: TOLVAPTAN
     Dosage: UNK
     Dates: start: 20150623, end: 20150712
  14. AMLODIPINE [Concomitant]
     Active Substance: AMLODIPINE BESYLATE
     Dosage: UNK
     Dates: end: 20150712
  15. TYKERB [Concomitant]
     Active Substance: LAPATINIB DITOSYLATE
     Dosage: UNK

REACTIONS (1)
  - Acute prerenal failure [Fatal]

NARRATIVE: CASE EVENT DATE: 20150622
